FAERS Safety Report 5175888-X (Version None)
Quarter: 2006Q4

REPORT INFORMATION
  Report Type: 
  Country: None (occurrence: None)
  Receive Date: 20061215
  Receipt Date: 20061213
  Transmission Date: 20070319
  Serious: Yes (Death)
  Sender: FDA-Public Use
  Company Number: BR-GLAXOSMITHKLINE-A0631645A

PATIENT
  Age: 55 Year
  Sex: Male
  Weight: 100 kg

DRUGS (3)
  1. SERETIDE [Suspect]
     Route: 065
     Dates: start: 20060101
  2. ANCORON [Concomitant]
     Dates: start: 20061001
  3. UNSPECIFIED MEDICATION [Concomitant]

REACTIONS (1)
  - DEATH [None]
